FAERS Safety Report 6110395-9 (Version None)
Quarter: 2009Q1

REPORT INFORMATION
  Report Type: 
  Country: None (occurrence: None)
  Receive Date: 20090310
  Receipt Date: 20090306
  Transmission Date: 20090719
  Serious: Yes (Hospitalization)
  Sender: FDA-Public Use
  Company Number: FR-WYE-G03270109

PATIENT
  Age: 88 Year
  Sex: Female

DRUGS (2)
  1. TAZOCILLINE [Suspect]
     Indication: URINARY TRACT INFECTION PSEUDOMONAL
     Route: 042
     Dates: start: 20081226
  2. PREVISCAN [Suspect]
     Indication: ANGIOPATHY
     Dosage: 15 MG ON EVEN DAYS AND 10 MG ON ODD DAYS
     Route: 048
     Dates: end: 20090108

REACTIONS (3)
  - ANTICOAGULATION DRUG LEVEL ABOVE THERAPEUTIC [None]
  - INTERNATIONAL NORMALISED RATIO INCREASED [None]
  - PROTHROMBIN TIME PROLONGED [None]
